FAERS Safety Report 20942767 (Version 2)
Quarter: 2022Q2

REPORT INFORMATION
  Report Type: Report from Study
  Country: IL (occurrence: IL)
  Receive Date: 20220610
  Receipt Date: 20220614
  Transmission Date: 20220720
  Serious: Yes (Hospitalization)
  Sender: FDA-Public Use
  Company Number: IL-ABBVIE-22K-082-4428158-00

PATIENT
  Sex: Male

DRUGS (1)
  1. HUMIRA [Suspect]
     Active Substance: ADALIMUMAB
     Indication: Psoriatic arthropathy
     Route: 058
     Dates: start: 20190731, end: 2020

REACTIONS (5)
  - Hypoaesthesia [Unknown]
  - Psoriasis [Unknown]
  - Intentional product misuse [Unknown]
  - Dysstasia [Unknown]
  - Fall [Unknown]
